FAERS Safety Report 8852123 (Version 1)
Quarter: 2012Q4

REPORT INFORMATION
  Report Type: 
  Country: US (occurrence: US)
  Receive Date: 20121022
  Receipt Date: 20121022
  Transmission Date: 20130627
  Serious: Yes (Other)
  Sender: FDA-Public Use
  Company Number: US-PFIZER INC-2012262079

PATIENT
  Age: 56 Year
  Sex: Female
  Weight: 72.56 kg

DRUGS (3)
  1. LYRICA [Suspect]
     Dosage: 50 mg, 1x/day
     Route: 048
  2. AMITRIPTYLINE [Concomitant]
     Indication: DEPRESSION
     Dosage: 50 mg, 1x/day
  3. SAVELLA [Concomitant]
     Dosage: 50 mg, 2x/day

REACTIONS (2)
  - Oesophageal disorder [Unknown]
  - Gastrooesophageal reflux disease [Not Recovered/Not Resolved]
